FAERS Safety Report 7595453-4 (Version None)
Quarter: 2011Q3

REPORT INFORMATION
  Report Type: 
  Country: None (occurrence: None)
  Receive Date: 20110707
  Receipt Date: 20110624
  Transmission Date: 20111222
  Serious: Yes (Hospitalization)
  Sender: FDA-Public Use
  Company Number: JP-ROCHE-787469

PATIENT
  Sex: Female

DRUGS (2)
  1. ACTEMRA [Suspect]
     Route: 041
     Dates: start: 20100316, end: 20100608
  2. ACTEMRA [Suspect]
     Indication: RHEUMATOID ARTHRITIS
     Route: 041
     Dates: start: 20081006, end: 20100119

REACTIONS (1)
  - ARRHYTHMIA [None]
